FAERS Safety Report 4697349-4 (Version None)
Quarter: 2005Q2

REPORT INFORMATION
  Report Type: 
  Country: None (occurrence: None)
  Receive Date: 20050621
  Receipt Date: 20050608
  Transmission Date: 20051028
  Serious: Yes (Hospitalization, Other)
  Sender: FDA-Public Use
  Company Number: 2005-0008412

PATIENT
  Sex: Male

DRUGS (4)
  1. TRUVADA [Suspect]
     Indication: HIV INFECTION
     Dates: start: 20050101, end: 20050604
  2. AMBISOME [Suspect]
     Indication: HISTOPLASMOSIS DISSEMINATED
     Dates: start: 20050201, end: 20050604
  3. ITRACONAZOLE [Suspect]
     Indication: HISTOPLASMOSIS DISSEMINATED
  4. EFAVIRENZ [Concomitant]

REACTIONS (8)
  - AORTIC VALVE DISEASE [None]
  - APPENDICITIS [None]
  - BLOOD CREATININE INCREASED [None]
  - CARDIAC FAILURE CONGESTIVE [None]
  - CEREBROVASCULAR ACCIDENT [None]
  - DYSPHAGIA [None]
  - HISTOPLASMOSIS DISSEMINATED [None]
  - LARGE INTESTINAL ULCER [None]
